FAERS Safety Report 14835402 (Version 2)
Quarter: 2018Q3

REPORT INFORMATION
  Report Type: Report from Study
  Country: None (occurrence: US)
  Receive Date: 20180502
  Receipt Date: 20180701
  Transmission Date: 20181010
  Serious: Yes (Other)
  Sender: FDA-Public Use
  Company Number: US-ABBVIE-18K-163-2234208-00

PATIENT
  Age: 60 Year
  Sex: Female

DRUGS (2)
  1. HUMIRA [Suspect]
     Active Substance: ADALIMUMAB
     Indication: PSORIATIC ARTHROPATHY
     Route: 058
     Dates: end: 201802
  2. HUMIRA [Suspect]
     Active Substance: ADALIMUMAB
     Route: 058
     Dates: start: 2018

REACTIONS (13)
  - Influenza [Unknown]
  - Limb injury [Unknown]
  - Contusion [Unknown]
  - Breast enlargement [Unknown]
  - Traumatic haematoma [Unknown]
  - Joint range of motion decreased [Unknown]
  - Psoriatic arthropathy [Not Recovered/Not Resolved]
  - Ankle fracture [Unknown]
  - Musculoskeletal pain [Unknown]
  - Internal haemorrhage [Unknown]
  - Road traffic accident [Unknown]
  - Adhesion [Unknown]
  - Post-traumatic pain [Unknown]

NARRATIVE: CASE EVENT DATE: 2018
